FAERS Safety Report 8818225 (Version 4)
Quarter: 2012Q4

REPORT INFORMATION
  Report Type: 
  Country: TW (occurrence: TW)
  Receive Date: 20121002
  Receipt Date: 20121220
  Transmission Date: 20130627
  Serious: Yes (Hospitalization, Other)
  Sender: FDA-Public Use
  Company Number: TW-ABBOTT-12P-153-0988659-00

PATIENT
  Age: 78 Year
  Sex: Male
  Weight: 85 kg

DRUGS (12)
  1. HUMIRA [Suspect]
     Indication: ANKYLOSING SPONDYLITIS
     Route: 058
     Dates: start: 20100204, end: 20120807
  2. HUMIRA [Suspect]
     Dates: start: 20120821
  3. CALCIUM CARBONATE [Concomitant]
     Indication: PRODUCT USED FOR UNKNOWN INDICATION
     Route: 048
  4. FOSAMAX PLUS [Concomitant]
     Indication: PRODUCT USED FOR UNKNOWN INDICATION
     Route: 048
  5. MOMETASONE FURO [Concomitant]
     Indication: PRODUCT USED FOR UNKNOWN INDICATION
     Dosage: 2 tube
     Route: 061
  6. MOMETASONE FURO [Concomitant]
     Dosage: 3 tube
     Route: 061
  7. LORATADINE [Concomitant]
     Indication: PRODUCT USED FOR UNKNOWN INDICATION
     Route: 048
  8. MAGNESIUM OXIDE [Concomitant]
     Indication: PRODUCT USED FOR UNKNOWN INDICATION
     Route: 048
  9. ULTRACET [Concomitant]
     Indication: PRODUCT USED FOR UNKNOWN INDICATION
  10. ESTAZOLAM [Concomitant]
     Indication: PRODUCT USED FOR UNKNOWN INDICATION
     Dosage: at night
     Route: 048
  11. RANITIDINE [Concomitant]
     Indication: PRODUCT USED FOR UNKNOWN INDICATION
     Dosage: PM
     Route: 048
  12. PANTOPRAZOLE [Concomitant]
     Indication: PRODUCT USED FOR UNKNOWN INDICATION
     Dosage: AC
     Route: 048

REACTIONS (10)
  - Spinal cord injury [Recovering/Resolving]
  - Thoracic vertebral fracture [Unknown]
  - Osteoporosis [Unknown]
  - Scoliosis [Unknown]
  - Osteoarthritis [Unknown]
  - Kyphoscoliosis [Unknown]
  - Compression fracture [Unknown]
  - Metastases to bone [Unknown]
  - Lordosis [Unknown]
  - Bone marrow disorder [Unknown]
